FAERS Safety Report 11182429 (Version 1)
Quarter: 2015Q2

REPORT INFORMATION
  Report Type: Spontaneous
  Country: US (occurrence: US)
  Receive Date: 20150611
  Receipt Date: 20150611
  Transmission Date: 20150821
  Serious: No
  Sender: FDA-Public Use
  Company Number: US-ASTELLAS-2015US018332

PATIENT
  Age: 79 Year
  Sex: Male

DRUGS (2)
  1. XTANDI [Suspect]
     Active Substance: ENZALUTAMIDE
     Indication: PROSTATE CANCER
     Dosage: 4 DF (160 MG), ONCE DAILY
     Route: 048
     Dates: start: 20150514
  2. XTANDI [Suspect]
     Active Substance: ENZALUTAMIDE
     Indication: NEOPLASM PROSTATE

REACTIONS (6)
  - Dizziness [Unknown]
  - Confusional state [Unknown]
  - Drug ineffective [Unknown]
  - Tremor [Unknown]
  - Feeling of despair [Unknown]
  - Vision blurred [Unknown]

NARRATIVE: CASE EVENT DATE: 20010514
